FAERS Safety Report 11381636 (Version 2)
Quarter: 2015Q3

REPORT INFORMATION
  Report Type: Spontaneous
  Country: NL (occurrence: NL)
  Receive Date: 20150814
  Receipt Date: 20150923
  Transmission Date: 20151125
  Serious: Yes (Other)
  Sender: FDA-Public Use
  Company Number: NL-TOLMAR, INC.-2015NL007287

PATIENT
  Sex: Male

DRUGS (3)
  1. ELIGARD [Suspect]
     Active Substance: LEUPROLIDE ACETATE
     Dosage: 45 MG, ONCE EVERY SIX MONTH
     Route: 058
     Dates: start: 20150420
  2. ELIGARD [Suspect]
     Active Substance: LEUPROLIDE ACETATE
     Indication: PROSTATE CANCER
     Dosage: 45 MG, ONCE EVERY SIX MONTH
     Route: 058
     Dates: start: 20130121
  3. ELIGARD [Suspect]
     Active Substance: LEUPROLIDE ACETATE
     Dosage: 45 MG, ONCE EVERY SIX MONTH
     Route: 058
     Dates: start: 20141030

REACTIONS (1)
  - Terminal state [Unknown]
